FAERS Safety Report 20004401 (Version 2)
Quarter: 2021Q4

REPORT INFORMATION
  Report Type: Report from Study
  Country: KR (occurrence: KR)
  Receive Date: 20211027
  Receipt Date: 20211103
  Transmission Date: 20220303
  Serious: Yes (Death, Hospitalization)
  Sender: FDA-Public Use
  Company Number: KR-002147023-NVSC2021KR235804

PATIENT

DRUGS (2)
  1. RUXOLITINIB [Suspect]
     Active Substance: RUXOLITINIB
     Indication: Myelofibrosis
     Dosage: 10 MG, QD (STRENGTH: 5 MG )
     Route: 048
     Dates: start: 20210702
  2. ELIQUIS [Suspect]
     Active Substance: APIXABAN
     Indication: Product used for unknown indication
     Dosage: UNK
     Route: 065

REACTIONS (6)
  - Acidosis [Fatal]
  - C-reactive protein increased [Unknown]
  - Haemoptysis [Fatal]
  - Myelofibrosis [Fatal]
  - Malignant neoplasm progression [Fatal]
  - Sepsis [Fatal]

NARRATIVE: CASE EVENT DATE: 20210914
